FAERS Safety Report 9758358 (Version 3)
Quarter: 2013Q4

REPORT INFORMATION
  Report Type: Report from Study
  Country: US (occurrence: US)
  Receive Date: 20131216
  Receipt Date: 20131227
  Transmission Date: 20140711
  Serious: Yes (Hospitalization)
  Sender: FDA-Public Use
  Company Number: US-SHIRE-ALL1-2013-06492

PATIENT
  Age: 10 Year
  Sex: Male
  Weight: 28.8 kg

DRUGS (17)
  1. IDURSULFASE [Suspect]
     Indication: MUCOPOLYSACCHARIDOSIS II
     Dosage: 24 MG, 1X/WEEK
     Route: 041
     Dates: start: 20100324
  2. IDURSULFASE [Suspect]
     Dosage: 12 MG, UNKNOWN
     Route: 041
     Dates: start: 20061031
  3. CEFDINIR [Concomitant]
     Indication: BRONCHITIS
     Dosage: 250 MG, 2X/DAY:BID
     Route: 048
     Dates: start: 20120105, end: 20120119
  4. ALBUTEROL W/IPRATROPIUM [Concomitant]
     Indication: BRONCHITIS
     Dosage: 5 MG, AS REQ^D
     Route: 055
     Dates: start: 20120104, end: 20120104
  5. ROCEPHIN [Concomitant]
     Indication: BRONCHITIS
     Dosage: 1.5 MG, ONE DOSE
     Route: 042
     Dates: start: 20120104, end: 20120104
  6. ACETAZOLAMIDE [Concomitant]
     Indication: HYDROCEPHALUS
     Dosage: 250 MG, 3X/DAY:TID
     Route: 048
     Dates: start: 20081128
  7. ACETAZOLAMIDE [Concomitant]
     Dosage: 125 MG, 2X/DAY:BID
     Route: 048
     Dates: start: 20080220
  8. DIASTAT                            /00017001/ [Concomitant]
     Indication: NERVOUS SYSTEM DISORDER
     Dosage: 7.5 MG, AS REQ^D
     Route: 030
     Dates: start: 20081008
  9. FERROUS SULFATE [Concomitant]
     Indication: BLOOD IRON DECREASED
     Dosage: 300 MG, 1X/DAY:QD
     Route: 048
     Dates: start: 20081007
  10. MELATONIN [Concomitant]
     Indication: SLEEP DISORDER
     Dosage: UNK, UNKNOWN
     Route: 065
     Dates: start: 20080731
  11. AMPICILLIN [Concomitant]
     Indication: ANTI-INFECTIVE THERAPY
     Dosage: 5 ML, 3X/DAY:TID
     Route: 048
     Dates: start: 20080620
  12. AMPICILLIN [Concomitant]
     Dosage: 10 ML, 2X/DAY:BID
     Route: 048
     Dates: start: 20080122
  13. HEPARIN                            /00027704/ [Concomitant]
     Indication: ANTICOAGULANT THERAPY
     Dosage: 500 IU, 1X/WEEK
     Route: 042
     Dates: start: 20070130
  14. XOPENEX [Concomitant]
     Indication: RESPIRATORY DISORDER
     Dosage: 0.31 MG, 1X/DAY:QD
     Route: 055
     Dates: start: 2005
  15. PULMICORT [Concomitant]
     Indication: RESPIRATORY DISORDER
     Dosage: 0.25 MG, 2X/DAY:BID
     Route: 055
     Dates: start: 2005
  16. DIURETICS [Concomitant]
     Indication: HYDROCEPHALUS
     Dosage: 250 MG, 2X/DAY:BID
     Route: 048
     Dates: start: 20080923
  17. DEXAMETHASONE [Concomitant]
     Indication: PREMEDICATION
     Dosage: UNK, UNKNOWN
     Route: 065

REACTIONS (3)
  - Respiratory failure [Recovered/Resolved]
  - Upper airway obstruction [Recovered/Resolved]
  - Condition aggravated [Recovered/Resolved]
